FAERS Safety Report 14431658 (Version 2)
Quarter: 2018Q1

REPORT INFORMATION
  Report Type: Spontaneous
  Country: LV (occurrence: LV)
  Receive Date: 20180124
  Receipt Date: 20180207
  Transmission Date: 20180509
  Serious: Yes (Death, Hospitalization, Other)
  Sender: FDA-Public Use
  Company Number: LV-009507513-1801LVA007510

PATIENT
  Age: 54 Year
  Sex: Male

DRUGS (5)
  1. PHENAZEPAM [Suspect]
     Active Substance: PHENAZEPAM
     Dosage: UNK
  2. ZEPATIER [Suspect]
     Active Substance: ELBASVIR\GRAZOPREVIR
     Indication: HEPATIC FIBROSIS
  3. ZEPATIER [Suspect]
     Active Substance: ELBASVIR\GRAZOPREVIR
     Indication: HEPATITIS C VIRUS TEST POSITIVE
     Dosage: UNK
     Route: 048
     Dates: start: 20170822, end: 20171113
  4. WELLBUTRIN [Suspect]
     Active Substance: BUPROPION HYDROCHLORIDE
     Dosage: UNK
  5. HEPA-MERZ (ORNITHINE ASPARTATE) [Suspect]
     Active Substance: ORNITHINE ASPARTATE
     Dosage: UNK

REACTIONS (3)
  - Death [Fatal]
  - Pneumonia [Unknown]
  - Influenza [Unknown]

NARRATIVE: CASE EVENT DATE: 2017
